FAERS Safety Report 25565008 (Version 1)
Quarter: 2025Q3

REPORT INFORMATION
  Report Type: Other
  Country: US (occurrence: US)
  Receive Date: 20250716
  Receipt Date: 20250716
  Transmission Date: 20251020
  Serious: Yes (Life-Threatening, Hospitalization)
  Sender: SINTETICA SA
  Company Number: US-Sintetica SA-2180605

PATIENT
  Age: 33 Year
  Sex: Male

DRUGS (4)
  1. LIDOCAINE [Suspect]
     Active Substance: LIDOCAINE
  2. SODIUM BICARBONATE [Concomitant]
     Active Substance: SODIUM BICARBONATE
  3. NALOXONE HCL [Concomitant]
     Active Substance: NALOXONE HYDROCHLORIDE
  4. ISOPROTERENOL [Concomitant]
     Active Substance: ISOPROTERENOL

REACTIONS (2)
  - Torsade de pointes [Unknown]
  - Drug level above therapeutic [Unknown]
